FAERS Safety Report 8340158-5 (Version None)
Quarter: 2012Q2

REPORT INFORMATION
  Report Type: 
  Country: None (occurrence: None)
  Receive Date: 20120507
  Receipt Date: 20120330
  Transmission Date: 20120825
  Serious: No
  Sender: FDA-Public Use
  Company Number: US-ASTRAZENECA-2012SE10619

PATIENT
  Age: 47 Year
  Sex: Female

DRUGS (2)
  1. VIMOVO [Suspect]
     Dosage: 500MG+20MG TWICE A DAY
     Route: 048
  2. ZOMIG-ZMT [Suspect]
     Indication: HEADACHE
     Route: 048

REACTIONS (3)
  - OSTEOARTHRITIS [None]
  - RENAL DISORDER [None]
  - FIBROMYALGIA [None]
